FAERS Safety Report 5197432-3 (Version None)
Quarter: 2006Q4

REPORT INFORMATION
  Report Type: 
  Country: None (occurrence: None)
  Receive Date: 20060927
  Receipt Date: 20060502
  Transmission Date: 20070319
  Serious: No
  Sender: FDA-Public Use
  Company Number: US-CVT-060933

PATIENT
  Sex: Female

DRUGS (13)
  1. RANEXA [Suspect]
     Indication: ANGINA PECTORIS
     Dosage: 500 MG, BID, ORAL
     Route: 048
     Dates: start: 20060401, end: 20060401
  2. PLAVIX [Concomitant]
  3. ASPIRIN [Concomitant]
  4. HYDROCHLOROTHIAZIDE [Concomitant]
  5. TOPROL-XL [Concomitant]
  6. IMDUR [Concomitant]
  7. PRILOSEC [Concomitant]
  8. LIPITOR/01326101/(ATORVASTATIN) [Concomitant]
  9. K-DUR 10 [Concomitant]
  10. LEXAPRO [Concomitant]
  11. NITROGLYCERIN [Concomitant]
  12. RESTORIL [Concomitant]
  13. MEPROBAMATE [Concomitant]

REACTIONS (3)
  - NERVOUSNESS [None]
  - PALPITATIONS [None]
  - PANIC ATTACK [None]
